FAERS Safety Report 24717786 (Version 2)
Quarter: 2024Q4

REPORT INFORMATION
  Report Type: Spontaneous
  Country: US (occurrence: US)
  Receive Date: 20241210
  Receipt Date: 20241217
  Transmission Date: 20250115
  Serious: No
  Sender: FRESENIUS KABI
  Company Number: US-FreseniusKabi-FK202418190

PATIENT
  Age: 64 Year
  Sex: Male
  Weight: 71.2 kg

DRUGS (14)
  1. HEPARIN SODIUM [Suspect]
     Active Substance: HEPARIN SODIUM
     Indication: Product used for unknown indication
     Dosage: 30,000 UNITS/ 30 ML
     Dates: start: 20241202
  2. HEPARIN SODIUM [Suspect]
     Active Substance: HEPARIN SODIUM
     Dosage: HEPARIN INJECTION 1,000 UNIT/1ML?DOSE: 10,000 UNITS
     Dates: start: 20241202
  3. HEPARIN SODIUM [Suspect]
     Active Substance: HEPARIN SODIUM
     Dosage: HEPARIN INJECTION 1,000 UNIT/1ML?DOSE: 10,000 UNITS
     Dates: start: 20241202
  4. HEPARIN SODIUM [Suspect]
     Active Substance: HEPARIN SODIUM
     Dosage: HEPARIN 1,000 UNITS/ML BOLUS ONLY?DOSE: 30,000 UNITS
     Dates: start: 20241202
  5. HEPARIN SODIUM [Suspect]
     Active Substance: HEPARIN SODIUM
     Dosage: HEPARIN 1,000 UNITS/ML BOLUS ONLY?DOSE: 10,000 UNITS
     Dates: start: 20241202
  6. AMICAR (aminocaproic acid) [Concomitant]
     Indication: Product used for unknown indication
     Dosage: AMINOCAPROIC ACID INJECTION 250 MG/1 ML (G)?TOTAL DOSE: 5G
     Dates: start: 20241202
  7. AMICAR (aminocaproic acid) [Concomitant]
     Dosage: AMINOCAPROIC ACID 5G IN SODIUM CHLORIDE 0.9 PERCENT 20 ML INFUSION (MG/KG/HR)?STOPPED
     Dates: start: 20241202
  8. AMICAR (aminocaproic acid) [Concomitant]
     Dosage: AMINOCAPROIC ACID 5G IN SODIUM CHLORIDE 0.9 PERCENT 20 ML INFUSION (MG/KG/HR)?STOPPED
     Dates: start: 20241202
  9. AMICAR (aminocaproic acid) [Concomitant]
     Dosage: AMINOCAPROIC ACID 5G IN SODIUM CHLORIDE 0.9 PERCENT 20 ML INFUSION (MG/KG/HR)?RATE CHANGED TO: 9.1 M
     Dates: start: 20241202
  10. AMICAR (aminocaproic acid) [Concomitant]
     Dosage: AMINOCAPROIC ACID 5G IN SODIUM CHLORIDE 0.9 PERCENT 20 ML INFUSION (MG/KG/HR)?STOPPED
     Dates: start: 20241202
  11. AMICAR (aminocaproic acid) [Concomitant]
     Dosage: AMINOCAPROIC ACID 5G IN SODIUM CHLORIDE 0.9 PERCENT 20 ML INFUSION (MG/KG/HR)?DOSE: 25.64 ML
     Dates: start: 20241202
  12. AMICAR (aminocaproic acid) [Concomitant]
     Dosage: AMINOCAPROIC ACID BOLUS ONLY (G)?TOTAL DOSE: 5 G
     Dates: start: 20241202
  13. AMICAR (aminocaproic acid) [Concomitant]
     Dosage: AMINOCAPROIC ACID 5G IN SODIUM CHLORIDE 0.9 PERCENT 20 ML INFUSION (MG/KG/HR)?DOSE: 9.12 ML/HR?NEW B
     Dates: start: 20241202
  14. THROMBATE III [Concomitant]
     Active Substance: ANTITHROMBIN III HUMAN
     Indication: Product used for unknown indication
     Dosage: ANTITHROMBIN III (THROMBATE III) INJECTION (UNITS), TOTAL DOSE: 500 UNITS?DOSE: 500 UNITS
     Dates: start: 20241202

REACTIONS (1)
  - Drug ineffective [Unknown]

NARRATIVE: CASE EVENT DATE: 20241202
